FAERS Safety Report 7513325-8 (Version None)
Quarter: 2011Q2

REPORT INFORMATION
  Report Type: 
  Country: None (occurrence: None)
  Receive Date: 20110531
  Receipt Date: 20110519
  Transmission Date: 20111010
  Serious: Yes (Other)
  Sender: FDA-Public Use
  Company Number: US-ASTRAZENECA-2011SE30689

PATIENT
  Age: 72 Year
  Sex: Male

DRUGS (10)
  1. ARICEPT [Concomitant]
     Indication: DEMENTIA ALZHEIMER'S TYPE
     Route: 048
  2. LEXAPRO [Concomitant]
     Indication: DEPRESSION
     Route: 048
  3. ENTOCORT EC [Suspect]
     Route: 048
  4. ZANTAC [Concomitant]
     Indication: GASTROOESOPHAGEAL REFLUX DISEASE
     Route: 048
  5. LOPRESSOR [Concomitant]
     Indication: HYPERTENSION
     Route: 048
  6. VITAMIN B-12 [Concomitant]
     Indication: HYPOVITAMINOSIS
     Route: 048
  7. SLIDING SCALE INSULIN [Concomitant]
     Indication: BLOOD GLUCOSE ABNORMAL
     Route: 058
  8. NEXIUM [Concomitant]
     Indication: GASTROOESOPHAGEAL REFLUX DISEASE
     Route: 048
  9. LISINOPRIL [Concomitant]
     Indication: HYPERTENSION
     Route: 048
  10. GLUCOPHAGE [Concomitant]
     Indication: DIABETES MELLITUS
     Route: 048

REACTIONS (1)
  - GASTROINTESTINAL TUBE INSERTION [None]
